FAERS Safety Report 9259991 (Version 2)
Quarter: 2013Q2

REPORT INFORMATION
  Report Type: Report from Study
  Country: AU (occurrence: AU)
  Receive Date: 20130429
  Receipt Date: 20130429
  Transmission Date: 20140414
  Serious: Yes (Hospitalization)
  Sender: FDA-Public Use
  Company Number: AU-BAYER-2013-045769

PATIENT
  Age: 81 Year
  Sex: Female
  Weight: 64 kg

DRUGS (7)
  1. REGORAFENIB [Suspect]
     Indication: COLORECTAL CANCER METASTATIC
     Dosage: 160 MG, QD
     Route: 048
     Dates: start: 20130325, end: 20130401
  2. IOVERSOL [Concomitant]
     Indication: CARDIOVASCULAR EVENT PROPHYLAXIS
     Dosage: DAILY DOSE: 5MG
     Route: 048
     Dates: start: 201211
  3. NORFLOXACIN [Concomitant]
     Indication: URINARY TRACT INFECTION
     Dosage: DAILY DOSE: 300MG
     Route: 048
     Dates: start: 20130301, end: 20130320
  4. PANADOL OSTEO [Concomitant]
     Indication: CANCER PAIN
     Dosage: DAILY DOSE: 665MG
     Route: 048
     Dates: start: 2011
  5. NITROFURANTOIN [Concomitant]
     Indication: URINARY TRACT INFECTION
     Dosage: DAILY DOSE: 300MG
     Route: 048
     Dates: start: 20130321, end: 20130401
  6. CIPROFLOXACIN [Concomitant]
     Indication: URINARY TRACT INFECTION
     Dosage: DAILY DOSE: 1000MG
     Route: 048
     Dates: start: 20130402
  7. OXYCODONE [Concomitant]
     Indication: CANCER PAIN
     Dosage: DAILY DOSE: 2.5MG
     Route: 048
     Dates: start: 20130408

REACTIONS (1)
  - Delirium [Recovered/Resolved]
